FAERS Safety Report 7968574-1 (Version None)
Quarter: 2011Q4

REPORT INFORMATION
  Report Type: 
  Country: None (occurrence: None)
  Receive Date: 20111209
  Receipt Date: 20111201
  Transmission Date: 20120403
  Serious: Yes (Hospitalization)
  Sender: FDA-Public Use
  Company Number: US-MERCK-1107USA01814

PATIENT
  Age: 69 Year
  Sex: Female

DRUGS (5)
  1. VITAMINS (UNSPECIFIED) [Concomitant]
     Route: 065
  2. FOSAMAX [Suspect]
     Indication: OSTEOPOROSIS
     Route: 048
     Dates: start: 20020107
  3. ACTONEL [Concomitant]
     Route: 048
     Dates: start: 20051001
  4. ACTONEL [Concomitant]
     Route: 048
     Dates: end: 20090701
  5. OS-CAL [Concomitant]
     Route: 065
     Dates: start: 20020107

REACTIONS (18)
  - GASTROOESOPHAGEAL REFLUX DISEASE [None]
  - MUSCULOSKELETAL PAIN [None]
  - SCAB [None]
  - DIARRHOEA [None]
  - COUGH [None]
  - RHINITIS [None]
  - HYPOTHYROIDISM [None]
  - DIVERTICULUM INTESTINAL [None]
  - DRUG INTOLERANCE [None]
  - ROAD TRAFFIC ACCIDENT [None]
  - BURSITIS [None]
  - HAEMORRHOIDS [None]
  - MYALGIA [None]
  - HYPERCHOLESTEROLAEMIA [None]
  - FEMUR FRACTURE [None]
  - HAEMATOCHEZIA [None]
  - HYPERTENSION [None]
  - ARTHRITIS [None]
